FAERS Safety Report 24755894 (Version 2)
Quarter: 2025Q2

REPORT INFORMATION
  Report Type: Report from Study
  Country: US (occurrence: US)
  Receive Date: 20241219
  Receipt Date: 20250408
  Transmission Date: 20250717
  Serious: Yes (Hospitalization, Other)
  Sender: TAKEDA
  Company Number: US-TAKEDA-2023TUS030872AA

PATIENT
  Sex: Female
  Weight: 65 kg

DRUGS (16)
  1. HUMAN IMMUNOGLOBULIN G [Suspect]
     Active Substance: HUMAN IMMUNOGLOBULIN G
     Indication: Plasma cell myeloma
     Dosage: 25 GRAM, Q6WEEKS
     Dates: start: 20230308
  2. HUMAN IMMUNOGLOBULIN G [Suspect]
     Active Substance: HUMAN IMMUNOGLOBULIN G
     Indication: Immunodeficiency common variable
     Dosage: 25 GRAM, Q6WEEKS
  3. CLARITIN [Concomitant]
     Active Substance: LORATADINE
  4. IBUPROFEN [Concomitant]
     Active Substance: IBUPROFEN
  5. ACYCLOVIR [Concomitant]
     Active Substance: ACYCLOVIR
  6. POMALYST [Concomitant]
     Active Substance: POMALIDOMIDE
  7. ONDANSETRON HYDROCHLORIDE [Concomitant]
     Active Substance: ONDANSETRON HYDROCHLORIDE
  8. TRAZODONE HCL [Concomitant]
     Active Substance: TRAZODONE HYDROCHLORIDE
  9. DEXAMETHASONE [Concomitant]
     Active Substance: DEXAMETHASONE
  10. ASPIRIN [Concomitant]
     Active Substance: ASPIRIN
  11. CLINDAMYCIN HYDROCHLORIDE [Concomitant]
     Active Substance: CLINDAMYCIN HYDROCHLORIDE
  12. GRANISETRON HYDROCHLORIDE [Concomitant]
     Active Substance: GRANISETRON HYDROCHLORIDE
  13. OCTAGAM IMMUNE GLOBULIN (HUMAN) [Concomitant]
     Active Substance: HUMAN IMMUNOGLOBULIN G
  14. ASPIRIN [Concomitant]
     Active Substance: ASPIRIN
  15. ONDANSETRON [Concomitant]
     Active Substance: ONDANSETRON
  16. CLINDAMYCIN [Concomitant]
     Active Substance: CLINDAMYCIN

REACTIONS (9)
  - Anaphylactic reaction [Unknown]
  - Pyrexia [Unknown]
  - Post procedural infection [Unknown]
  - Nasopharyngitis [Unknown]
  - Laryngitis [Unknown]
  - Product dose omission issue [Unknown]
  - Weight decreased [Unknown]
  - Nasal congestion [Unknown]
  - Cough [Unknown]
